FAERS Safety Report 21779899 (Version 1)
Quarter: 2022Q4

REPORT INFORMATION
  Report Type: Report from Study
  Country: DZ (occurrence: DZ)
  Receive Date: 20221226
  Receipt Date: 20221226
  Transmission Date: 20230113
  Serious: Yes (Other)
  Sender: FDA-Public Use
  Company Number: DZ-JNJFOC-20221242928

PATIENT
  Sex: Male

DRUGS (1)
  1. IMBRUVICA [Suspect]
     Active Substance: IBRUTINIB
     Indication: Waldenstrom^s macroglobulinaemia
     Route: 048
     Dates: start: 20220928, end: 202212

REACTIONS (1)
  - Renal disorder [Unknown]
